FAERS Safety Report 15759207 (Version 1)
Quarter: 2018Q4

REPORT INFORMATION
  Report Type: Spontaneous
  Country: TW (occurrence: TW)
  Receive Date: 20181226
  Receipt Date: 20181226
  Transmission Date: 20190205
  Serious: Yes (Death, Other)
  Sender: FDA-Public Use
  Company Number: TW-009507513-1812TWN010111

PATIENT
  Age: 76 Year
  Sex: Male

DRUGS (4)
  1. IMIPENEM AND CILASTATIN [Suspect]
     Active Substance: CILASTATIN SODIUM\IMIPENEM
  2. VANCOMYCIN [Concomitant]
     Active Substance: VANCOMYCIN
  3. CEFTRIAXONE. [Concomitant]
     Active Substance: CEFTRIAXONE
  4. RITUXIMAB. [Concomitant]
     Active Substance: RITUXIMAB
     Route: 042

REACTIONS (1)
  - Drug ineffective [Fatal]
